FAERS Safety Report 11559681 (Version 2)
Quarter: 2015Q4

REPORT INFORMATION
  Report Type: Spontaneous
  Country: US (occurrence: US)
  Receive Date: 20150928
  Receipt Date: 20151211
  Transmission Date: 20160304
  Serious: Yes (Hospitalization)
  Sender: FDA-Public Use
  Company Number: US-BAYER-2015-427450

PATIENT
  Age: 27 Year
  Sex: Female

DRUGS (1)
  1. SKYLA [Suspect]
     Active Substance: LEVONORGESTREL
     Indication: CONTRACEPTION
     Dosage: 14 MCG/24HR, CONT
     Route: 015
     Dates: start: 201407, end: 2015

REACTIONS (12)
  - Procedural pain [None]
  - Back pain [Recovered/Resolved]
  - Psychological trauma [None]
  - Discomfort [None]
  - Ectopic pregnancy with contraceptive device [Recovered/Resolved]
  - Myalgia [None]
  - Peritoneal haemorrhage [Recovered/Resolved]
  - Uterine pain [None]
  - Tremor [None]
  - Amenorrhoea [Recovered/Resolved]
  - Abdominal pain [Recovered/Resolved]
  - Drug ineffective [None]

NARRATIVE: CASE EVENT DATE: 2015
